FAERS Safety Report 8166087-8 (Version None)
Quarter: 2012Q1

REPORT INFORMATION
  Report Type: 
  Country: None (occurrence: None)
  Receive Date: 20120227
  Receipt Date: 20110404
  Transmission Date: 20120608
  Serious: No
  Sender: FDA-Public Use
  Company Number: US-MYLANLABS-2011S1005524

PATIENT
  Age: 15 Year
  Sex: Female

DRUGS (4)
  1. CLARAVIS [Suspect]
     Dates: start: 20101001
  2. ORTHO TRI-CYCLEN [Concomitant]
  3. AMNESTEEM [Suspect]
     Indication: ACNE
     Route: 048
     Dates: start: 20100901, end: 20110308
  4. YAZ [Suspect]

REACTIONS (2)
  - MOOD ALTERED [None]
  - DEPRESSION [None]
